FAERS Safety Report 5924841-4 (Version None)
Quarter: 2008Q4

REPORT INFORMATION
  Report Type: 
  Country: None (occurrence: None)
  Receive Date: 20081017
  Receipt Date: 20081017
  Transmission Date: 20090506
  Serious: Yes (Life-Threatening, Hospitalization, Disabling)
  Sender: FDA-Public Use
  Company Number: None

PATIENT
  Age: 3 Year
  Sex: Male
  Weight: 15.8759 kg

DRUGS (1)
  1. ATROVENT [Suspect]
     Indication: ASTHMA
     Dosage: 5MG5MG
     Dates: start: 20080923, end: 20080923

REACTIONS (4)
  - ANAPHYLACTIC REACTION [None]
  - CRYING [None]
  - DOCUMENTED HYPERSENSITIVITY TO ADMINISTERED DRUG [None]
  - SCREAMING [None]
